FAERS Safety Report 16532036 (Version 2)
Quarter: 2019Q3

REPORT INFORMATION
  Report Type: Spontaneous
  Country: JP (occurrence: JP)
  Receive Date: 20190705
  Receipt Date: 20190717
  Transmission Date: 20191004
  Serious: Yes (Death)
  Sender: FDA-Public Use
  Company Number: JP-GUERBET-JP-20190097

PATIENT
  Age: 76 Year
  Sex: Female

DRUGS (6)
  1. LIPIODOL [Suspect]
     Active Substance: ETHIODIZED OIL
     Indication: TRANSCATHETER ARTERIAL CHEMOEMBOLISATION
     Route: 013
  2. MIRIPLA SUSPENSION VEHICLE [Concomitant]
     Indication: REGIONAL CHEMOTHERAPY
     Route: 013
  3. MIRIPLATIN [Concomitant]
     Active Substance: MIRIPLATIN
     Indication: TRANSCATHETER ARTERIAL CHEMOEMBOLISATION
  4. MIRIPLATIN [Concomitant]
     Active Substance: MIRIPLATIN
     Indication: REGIONAL CHEMOTHERAPY
     Route: 013
  5. EPIRUBICIN [Concomitant]
     Active Substance: EPIRUBICIN
     Indication: TRANSCATHETER ARTERIAL CHEMOEMBOLISATION
     Route: 013
  6. MIRIPLA SUSPENSION VEHICLE [Concomitant]
     Indication: TRANSCATHETER ARTERIAL CHEMOEMBOLISATION

REACTIONS (1)
  - Idiopathic interstitial pneumonia [Fatal]
